FAERS Safety Report 21473131 (Version 1)
Quarter: 2022Q4

REPORT INFORMATION
  Report Type: Spontaneous
  Country: US (occurrence: US)
  Receive Date: 20221018
  Receipt Date: 20221018
  Transmission Date: 20230112
  Serious: No
  Sender: FDA-Public Use
  Company Number: US-BRISTOL-MYERS SQUIBB COMPANY-2022-122151

PATIENT
  Age: 86 Year
  Sex: Female
  Weight: 60.33 kg

DRUGS (1)
  1. ELIQUIS [Suspect]
     Active Substance: APIXABAN
     Indication: Deep vein thrombosis
     Dosage: 1 DF: 1 TABLET
     Route: 048
     Dates: start: 20221007

REACTIONS (1)
  - Musculoskeletal pain [Unknown]
